FAERS Safety Report 13580529 (Version 4)
Quarter: 2017Q2

REPORT INFORMATION
  Report Type: Report from Study
  Country: US (occurrence: US)
  Receive Date: 20170525
  Receipt Date: 20170622
  Transmission Date: 20170830
  Serious: Yes (Other)
  Sender: FDA-Public Use
  Company Number: US-ROCHE-1857288

PATIENT
  Age: 59 Year
  Sex: Female
  Weight: 71.73 kg

DRUGS (6)
  1. BENZONATATE. [Concomitant]
     Active Substance: BENZONATATE
     Indication: COUGH
     Route: 065
     Dates: end: 201611
  2. ESBRIET [Suspect]
     Active Substance: PIRFENIDONE
     Indication: IDIOPATHIC PULMONARY FIBROSIS
     Dosage: THREE CAPSULES THREE TIMES A DAY ;ONGOING: YES
     Route: 048
     Dates: start: 20161018
  3. PREDNISONE. [Concomitant]
     Active Substance: PREDNISONE
     Indication: IDIOPATHIC PULMONARY FIBROSIS
     Route: 065
     Dates: end: 201611
  4. ESBRIET [Suspect]
     Active Substance: PIRFENIDONE
     Dosage: THREE CAPSULES THREE TIMES A DAY ;ONGOING: YES
     Route: 048
     Dates: start: 20170208
  5. PREDNISONE. [Concomitant]
     Active Substance: PREDNISONE
     Dosage: ONGOING: YES
     Route: 065
     Dates: start: 201611
  6. BENZONATATE. [Concomitant]
     Active Substance: BENZONATATE
     Dosage: TWO TABLETS THREE TIMES A DAY ;ONGOING: YES
     Route: 065
     Dates: start: 201611

REACTIONS (4)
  - Eructation [Unknown]
  - Skin disorder [Unknown]
  - Throat irritation [Not Recovered/Not Resolved]
  - Dyspnoea [Recovered/Resolved]

NARRATIVE: CASE EVENT DATE: 20161118
